FAERS Safety Report 25555714 (Version 1)
Quarter: 2025Q3

REPORT INFORMATION
  Report Type: Spontaneous
  Country: US (occurrence: US)
  Receive Date: 20250715
  Receipt Date: 20250715
  Transmission Date: 20251021
  Serious: Yes (Hospitalization, Other)
  Sender: NOVO NORDISK
  Company Number: US-NOVOPROD-1248863

PATIENT
  Age: 61 Year
  Sex: Male
  Weight: 109.3 kg

DRUGS (20)
  1. OZEMPIC [Suspect]
     Active Substance: SEMAGLUTIDE
     Indication: Diabetes mellitus
     Dates: start: 20220822, end: 20230912
  2. OZEMPIC [Suspect]
     Active Substance: SEMAGLUTIDE
     Indication: Weight control
     Dosage: 0.5 MG, QW
     Route: 058
     Dates: start: 20221016, end: 20221202
  3. OZEMPIC [Suspect]
     Active Substance: SEMAGLUTIDE
     Dosage: 1 MG, QW
     Route: 058
     Dates: start: 20221202, end: 20240404
  4. OZEMPIC [Suspect]
     Active Substance: SEMAGLUTIDE
     Dosage: 2 MG, QW
     Dates: start: 20230404, end: 20230912
  5. METFORMIN [Concomitant]
     Active Substance: METFORMIN HYDROCHLORIDE
     Indication: Diabetes mellitus
     Dates: start: 20100427
  6. GLIPIZIDE [Concomitant]
     Active Substance: GLIPIZIDE
     Indication: Diabetes mellitus
     Dates: start: 20211008, end: 20231006
  7. CICLOPIROX [Concomitant]
     Active Substance: CICLOPIROX
     Indication: Fungal infection
     Dates: start: 20221004, end: 20221104
  8. CLINDAMYCIN [Concomitant]
     Active Substance: CLINDAMYCIN
     Indication: Rash
     Dates: start: 20240530
  9. LISINOPRIL [Concomitant]
     Active Substance: LISINOPRIL
     Indication: Hypertension
     Dates: start: 20221020
  10. ATORVASTATIN [Concomitant]
     Active Substance: ATORVASTATIN
     Indication: Hyperlipidaemia
     Dates: start: 20220204
  11. COLCHICINE [Concomitant]
     Active Substance: COLCHICINE
     Indication: Gout
     Dates: start: 20240724
  12. VIAGRA [Concomitant]
     Active Substance: SILDENAFIL CITRATE
     Indication: Erectile dysfunction
     Dates: start: 20220701, end: 20230625
  13. FINASTERIDE [Concomitant]
     Active Substance: FINASTERIDE
     Indication: Prostatomegaly
     Dates: start: 20220217, end: 20230617
  14. TAMSULOSIN HYDROCHLORIDE [Concomitant]
     Active Substance: TAMSULOSIN HYDROCHLORIDE
     Indication: Prostatomegaly
     Dates: start: 20220228, end: 20231128
  15. ASPIRIN [Concomitant]
     Active Substance: ASPIRIN
     Indication: Cardiac disorder
     Dates: start: 20161214
  16. OMEGA-3 FATTY ACIDS [Concomitant]
     Active Substance: OMEGA-3 FATTY ACIDS
     Indication: Blood cholesterol
     Dates: start: 20161214
  17. CHOLECALCIFEROL [Concomitant]
     Active Substance: CHOLECALCIFEROL
     Indication: Vitamin D
     Dates: start: 20200608
  18. CARMOL [UREA] [Concomitant]
     Indication: Dry skin
     Dates: start: 20221007
  19. COLACE [Concomitant]
     Active Substance: DOCUSATE SODIUM
     Indication: Constipation
  20. IBUPROFEN [Concomitant]
     Active Substance: IBUPROFEN
     Indication: Pain
     Dates: start: 20221214, end: 20231026

REACTIONS (8)
  - Cholecystectomy [Unknown]
  - Cholelithiasis [Recovered/Resolved]
  - Impaired gastric emptying [Not Recovered/Not Resolved]
  - Nausea [Not Recovered/Not Resolved]
  - Abdominal pain [Not Recovered/Not Resolved]
  - Constipation [Not Recovered/Not Resolved]
  - Stress [Unknown]
  - Abdominal distension [Not Recovered/Not Resolved]

NARRATIVE: CASE EVENT DATE: 20220901
